FAERS Safety Report 9066437 (Version 2)
Quarter: 2013Q4

REPORT INFORMATION
  Report Type: Report from Study
  Country: DE (occurrence: DE)
  Receive Date: 20130214
  Receipt Date: 20131105
  Transmission Date: 20140711
  Serious: Yes (Hospitalization)
  Sender: FDA-Public Use
  Company Number: DE-ROCHE-1186792

PATIENT
  Age: 63 Year
  Sex: Female
  Weight: 74 kg

DRUGS (4)
  1. TRASTUZUMAB [Suspect]
     Indication: HER-2 POSITIVE BREAST CANCER
     Route: 042
     Dates: start: 20121016, end: 20121016
  2. TRASTUZUMAB [Suspect]
     Dosage: LAST DOSE PRIOR TO SAE: 04/DEC/2012. PERMANENTLY DISCONTINUED.
     Route: 042
     Dates: end: 20130130
  3. PACLITAXEL [Suspect]
     Indication: HER-2 POSITIVE BREAST CANCER
     Dosage: LAST DOSE PRIOR TO SAE: 11/DEC/2012. PERMANENTLY DISCONTINUED.
     Route: 042
     Dates: start: 20121016, end: 20121211
  4. PLACEBO [Suspect]
     Indication: HER-2 POSITIVE BREAST CANCER
     Dosage: LAST DOSE PRIOR TO SAE: 04/DEC/2012
     Route: 042
     Dates: start: 20121016, end: 20130130

REACTIONS (3)
  - Abscess limb [Recovered/Resolved]
  - Subcutaneous abscess [Recovered/Resolved]
  - Pyrexia [Recovered/Resolved]
